FAERS Safety Report 5330014-9 (Version None)
Quarter: 2007Q2

REPORT INFORMATION
  Report Type: 
  Country: None (occurrence: None)
  Receive Date: 20070521
  Receipt Date: 20070511
  Transmission Date: 20071010
  Serious: Yes (Life-Threatening, Hospitalization, Other)
  Sender: FDA-Public Use
  Company Number: B0471425A

PATIENT
  Age: 71 Year
  Sex: Male
  Weight: 104 kg

DRUGS (7)
  1. ROSIGLITAZONE [Suspect]
     Indication: DRUG USE FOR UNKNOWN INDICATION
     Dosage: 4MG TWICE PER DAY
     Route: 048
     Dates: start: 20050411, end: 20070423
  2. SIMVASTATIN [Suspect]
     Indication: DRUG USE FOR UNKNOWN INDICATION
     Dosage: 20MG PER DAY
     Route: 048
     Dates: start: 20000101, end: 20070423
  3. ASPIRIN [Concomitant]
     Dosage: 75MG PER DAY
  4. ATENOLOL [Concomitant]
     Dosage: 50MG PER DAY
  5. BISOPROLOL FUMARATE [Concomitant]
     Dosage: 2.5MG PER DAY
  6. FUROSEMIDE [Concomitant]
     Dosage: 40MG PER DAY
  7. METFORMIN HCL [Concomitant]
     Dosage: 500MG THREE TIMES PER DAY

REACTIONS (9)
  - ABDOMINAL PAIN UPPER [None]
  - ACUTE CORONARY SYNDROME [None]
  - ATRIAL FIBRILLATION [None]
  - HYPERHIDROSIS [None]
  - INTESTINAL ISCHAEMIA [None]
  - LEFT VENTRICULAR FAILURE [None]
  - PANCREATITIS ACUTE [None]
  - PULMONARY OEDEMA [None]
  - VOMITING [None]
